FAERS Safety Report 12250440 (Version 1)
Quarter: 2016Q2

REPORT INFORMATION
  Report Type: Spontaneous
  Country: US (occurrence: US)
  Receive Date: 20160408
  Receipt Date: 20160408
  Transmission Date: 20160815
  Serious: No
  Sender: FDA-Public Use
  Company Number: US-SHIRE-US201604260

PATIENT
  Age: 15 Year
  Sex: Male

DRUGS (3)
  1. VYVANSE [Suspect]
     Active Substance: LISDEXAMFETAMINE DIMESYLATE
     Dosage: 40 MG, UNKNOWN
     Route: 048
  2. VYVANSE [Suspect]
     Active Substance: LISDEXAMFETAMINE DIMESYLATE
     Indication: PRODUCT USED FOR UNKNOWN INDICATION
     Dosage: 60 MG, UNKNOWN
     Route: 048
  3. VYVANSE [Suspect]
     Active Substance: LISDEXAMFETAMINE DIMESYLATE
     Dosage: UNK

REACTIONS (1)
  - Anxiety [Unknown]
